FAERS Safety Report 4832879-3 (Version None)
Quarter: 2005Q4

REPORT INFORMATION
  Report Type: 
  Country: None (occurrence: None)
  Receive Date: 20051121
  Receipt Date: 20041203
  Transmission Date: 20060501
  Serious: Yes (Other)
  Sender: FDA-Public Use
  Company Number: GB-GLAXOSMITHKLINE-B0359444A

PATIENT
  Sex: Female

DRUGS (1)
  1. SEROXAT [Suspect]
     Route: 065

REACTIONS (6)
  - AGGRESSION [None]
  - COMPLETED SUICIDE [None]
  - DEPRESSION [None]
  - SELF INJURIOUS BEHAVIOUR [None]
  - STRESS [None]
  - SUICIDAL IDEATION [None]
